FAERS Safety Report 19521665 (Version 1)
Quarter: 2021Q3

REPORT INFORMATION
  Report Type: Report from Study
  Country: FR (occurrence: FR)
  Receive Date: 20210712
  Receipt Date: 20210712
  Transmission Date: 20211014
  Serious: Yes (Hospitalization, Other)
  Sender: FDA-Public Use
  Company Number: FR-TAKEDA-FR201729142

PATIENT
  Age: 62 Year
  Sex: Female
  Weight: 58.3 kg

DRUGS (56)
  1. TEDUGLUTIDE [Suspect]
     Active Substance: TEDUGLUTIDE
     Dosage: 2.6 MG, 1X/DAY:QD
     Route: 065
     Dates: start: 20160912, end: 20161206
  2. TEDUGLUTIDE [Suspect]
     Active Substance: TEDUGLUTIDE
     Dosage: 3.0 MILLIGRAM, (0.05MG/KG), QD
     Route: 065
     Dates: start: 20160404, end: 20160824
  3. TEDUGLUTIDE [Suspect]
     Active Substance: TEDUGLUTIDE
     Dosage: 2.8 MILLIGRAM, (0.05MG/KG), QD
     Route: 065
     Dates: start: 20160825, end: 20160908
  4. TEDUGLUTIDE [Suspect]
     Active Substance: TEDUGLUTIDE
     Dosage: 2.8 MILLIGRAM, (0.05MG/KG), QD
     Route: 065
     Dates: start: 20160825, end: 20160908
  5. TEDUGLUTIDE [Suspect]
     Active Substance: TEDUGLUTIDE
     Dosage: 2.8 MILLIGRAM, (0.05MG/KG), QD
     Route: 065
     Dates: start: 20160915, end: 20161107
  6. TEDUGLUTIDE [Suspect]
     Active Substance: TEDUGLUTIDE
     Dosage: 2.8 MILLIGRAM, (0.05MG/KG), QD
     Route: 065
     Dates: start: 20160915, end: 20161107
  7. TEDUGLUTIDE [Suspect]
     Active Substance: TEDUGLUTIDE
     Dosage: 2.6 MILLIGRAM, (0.05MG/KG), QD
     Route: 065
     Dates: start: 20161108, end: 20161206
  8. TEDUGLUTIDE [Suspect]
     Active Substance: TEDUGLUTIDE
     Dosage: 2.4 MILLIGRAM, (0.05MG/KG), QD
     Route: 065
     Dates: start: 20181130
  9. TEDUGLUTIDE [Suspect]
     Active Substance: TEDUGLUTIDE
     Dosage: 2.4 MILLIGRAM, (0.05MG/KG), QD
     Route: 065
     Dates: start: 20181130
  10. TEDUGLUTIDE [Suspect]
     Active Substance: TEDUGLUTIDE
     Indication: SHORT-BOWEL SYNDROME
     Dosage: 3 MG, 1X/DAY:QD
     Route: 065
     Dates: start: 20160404, end: 20160911
  11. TEDUGLUTIDE [Suspect]
     Active Substance: TEDUGLUTIDE
     Indication: SHORT-BOWEL SYNDROME
     Dosage: 3 MG, 1X/DAY:QD
     Route: 065
     Dates: start: 20160404, end: 20160911
  12. TEDUGLUTIDE [Suspect]
     Active Substance: TEDUGLUTIDE
     Dosage: 2.6 MILLIGRAM, (0.05MG/KG), QD
     Route: 065
     Dates: start: 20160909, end: 20160914
  13. TEDUGLUTIDE [Suspect]
     Active Substance: TEDUGLUTIDE
     Dosage: 2.8 MILLIGRAM, (0.05MG/KG), QD
     Route: 065
     Dates: start: 20170214, end: 20170220
  14. TEDUGLUTIDE [Suspect]
     Active Substance: TEDUGLUTIDE
     Dosage: 2.6 MILLIGRAM, (0.05MG/KG), QD
     Route: 065
     Dates: start: 20170303, end: 20170411
  15. TEDUGLUTIDE [Suspect]
     Active Substance: TEDUGLUTIDE
     Dosage: 2.4 MILLIGRAM, (0.05MG/KG), QD
     Route: 065
     Dates: start: 20181130
  16. TEDUGLUTIDE [Suspect]
     Active Substance: TEDUGLUTIDE
     Dosage: 2.6 MG, 1X/DAY:QD
     Route: 065
     Dates: start: 20170217
  17. TEDUGLUTIDE [Suspect]
     Active Substance: TEDUGLUTIDE
     Dosage: 3.0 MILLIGRAM, (0.05MG/KG), QD
     Route: 065
     Dates: start: 20160404, end: 20160824
  18. TEDUGLUTIDE [Suspect]
     Active Substance: TEDUGLUTIDE
     Dosage: 2.6 MG, 1X/DAY:QD
     Route: 065
     Dates: start: 20160912, end: 20161206
  19. TEDUGLUTIDE [Suspect]
     Active Substance: TEDUGLUTIDE
     Dosage: 2.6 MG, 1X/DAY:QD
     Route: 065
     Dates: start: 20170217
  20. TEDUGLUTIDE [Suspect]
     Active Substance: TEDUGLUTIDE
     Dosage: 2.6 MG, 1X/DAY:QD
     Route: 065
     Dates: start: 20170217
  21. TEDUGLUTIDE [Suspect]
     Active Substance: TEDUGLUTIDE
     Dosage: 3.0 MILLIGRAM, (0.05MG/KG), QD
     Route: 065
     Dates: start: 20160404, end: 20160824
  22. TEDUGLUTIDE [Suspect]
     Active Substance: TEDUGLUTIDE
     Dosage: 2.8 MILLIGRAM, (0.05MG/KG), QD
     Route: 065
     Dates: start: 20160825, end: 20160908
  23. TEDUGLUTIDE [Suspect]
     Active Substance: TEDUGLUTIDE
     Dosage: 2.8 MILLIGRAM, (0.05MG/KG), QD
     Route: 065
     Dates: start: 20160825, end: 20160908
  24. TEDUGLUTIDE [Suspect]
     Active Substance: TEDUGLUTIDE
     Dosage: 2.8 MILLIGRAM, (0.05MG/KG), QD
     Route: 065
     Dates: start: 20160915, end: 20161107
  25. TEDUGLUTIDE [Suspect]
     Active Substance: TEDUGLUTIDE
     Dosage: 2.6 MILLIGRAM, (0.05MG/KG), QD
     Route: 065
     Dates: start: 20161108, end: 20161206
  26. TEDUGLUTIDE [Suspect]
     Active Substance: TEDUGLUTIDE
     Dosage: 2.8 MILLIGRAM, (0.05MG/KG), QD
     Route: 065
     Dates: start: 20170214, end: 20170220
  27. MAGNESIUM SULFATE. [Concomitant]
     Active Substance: MAGNESIUM SULFATE
     Indication: SHORT-BOWEL SYNDROME
     Dosage: 15000 MILLIGRAM, CONTINUOUS RUNNING
     Route: 042
     Dates: start: 201911
  28. TEDUGLUTIDE [Suspect]
     Active Substance: TEDUGLUTIDE
     Dosage: 2.6 MG, 1X/DAY:QD
     Route: 065
     Dates: start: 20160912, end: 20161206
  29. TEDUGLUTIDE [Suspect]
     Active Substance: TEDUGLUTIDE
     Dosage: 3.0 MILLIGRAM, (0.05MG/KG), QD
     Route: 065
     Dates: start: 20160404, end: 20160824
  30. TEDUGLUTIDE [Suspect]
     Active Substance: TEDUGLUTIDE
     Dosage: 2.8 MILLIGRAM, (0.05MG/KG), QD
     Route: 065
     Dates: start: 20170214, end: 20170220
  31. TEDUGLUTIDE [Suspect]
     Active Substance: TEDUGLUTIDE
     Dosage: 2.8 MILLIGRAM, (0.05MG/KG), QD
     Route: 065
     Dates: start: 20170412, end: 20181129
  32. COUMADINE [Concomitant]
     Active Substance: WARFARIN SODIUM
     Indication: THROMBOSIS PROPHYLAXIS
  33. TEDUGLUTIDE [Suspect]
     Active Substance: TEDUGLUTIDE
     Dosage: 2.8 MILLIGRAM, (0.05MG/KG), QD
     Route: 065
     Dates: start: 20160915, end: 20161107
  34. TEDUGLUTIDE [Suspect]
     Active Substance: TEDUGLUTIDE
     Dosage: 2.6 MILLIGRAM, (0.05MG/KG), QD
     Route: 065
     Dates: start: 20161108, end: 20161206
  35. TEDUGLUTIDE [Suspect]
     Active Substance: TEDUGLUTIDE
     Dosage: 2.6 MILLIGRAM, (0.05MG/KG), QD
     Route: 065
     Dates: start: 20161108, end: 20161206
  36. TEDUGLUTIDE [Suspect]
     Active Substance: TEDUGLUTIDE
     Dosage: 2.6 MILLIGRAM, (0.05MG/KG), QD
     Route: 065
     Dates: start: 20170303, end: 20170411
  37. TEDUGLUTIDE [Suspect]
     Active Substance: TEDUGLUTIDE
     Dosage: 2.6 MILLIGRAM, (0.05MG/KG), QD
     Route: 065
     Dates: start: 20170303, end: 20170411
  38. CONTRAMAL [Concomitant]
     Active Substance: TRAMADOL HYDROCHLORIDE
     Indication: BACK PAIN
  39. BACTRIM [Concomitant]
     Active Substance: SULFAMETHOXAZOLE\TRIMETHOPRIM
     Indication: SEPSIS
  40. TEDUGLUTIDE [Suspect]
     Active Substance: TEDUGLUTIDE
     Indication: SHORT-BOWEL SYNDROME
     Dosage: 3 MG, 1X/DAY:QD
     Route: 065
     Dates: start: 20160404, end: 20160911
  41. TEDUGLUTIDE [Suspect]
     Active Substance: TEDUGLUTIDE
     Dosage: 2.6 MG, 1X/DAY:QD
     Route: 065
     Dates: start: 20160912, end: 20161206
  42. TEDUGLUTIDE [Suspect]
     Active Substance: TEDUGLUTIDE
     Dosage: 2.6 MG, 1X/DAY:QD
     Route: 065
     Dates: start: 20170217
  43. TEDUGLUTIDE [Suspect]
     Active Substance: TEDUGLUTIDE
     Dosage: 2.6 MILLIGRAM, (0.05MG/KG), QD
     Route: 065
     Dates: start: 20160909, end: 20160914
  44. TEDUGLUTIDE [Suspect]
     Active Substance: TEDUGLUTIDE
     Dosage: 2.6 MILLIGRAM, (0.05MG/KG), QD
     Route: 065
     Dates: start: 20160909, end: 20160914
  45. TEDUGLUTIDE [Suspect]
     Active Substance: TEDUGLUTIDE
     Dosage: 2.6 MILLIGRAM, (0.05MG/KG), QD
     Route: 065
     Dates: start: 20170303, end: 20170411
  46. COUMADINE [Concomitant]
     Active Substance: WARFARIN SODIUM
     Indication: PROPHYLAXIS
     Dosage: 1.50 MILLIGRAM, QD
     Route: 048
     Dates: start: 20191125
  47. CALCIUM CARBONATE. [Concomitant]
     Active Substance: CALCIUM CARBONATE
     Indication: SHORT-BOWEL SYNDROME
     Dosage: 500 MILLIGRAM, QD
     Route: 048
     Dates: start: 20200214
  48. TEDUGLUTIDE [Suspect]
     Active Substance: TEDUGLUTIDE
     Indication: SHORT-BOWEL SYNDROME
     Dosage: 3 MG, 1X/DAY:QD
     Route: 065
     Dates: start: 20160404, end: 20160911
  49. TEDUGLUTIDE [Suspect]
     Active Substance: TEDUGLUTIDE
     Dosage: 2.6 MILLIGRAM, (0.05MG/KG), QD
     Route: 065
     Dates: start: 20160909, end: 20160914
  50. TEDUGLUTIDE [Suspect]
     Active Substance: TEDUGLUTIDE
     Dosage: 2.8 MILLIGRAM, (0.05MG/KG), QD
     Route: 065
     Dates: start: 20170214, end: 20170220
  51. TEDUGLUTIDE [Suspect]
     Active Substance: TEDUGLUTIDE
     Dosage: 2.8 MILLIGRAM, (0.05MG/KG), QD
     Route: 065
     Dates: start: 20170412, end: 20181129
  52. TEDUGLUTIDE [Suspect]
     Active Substance: TEDUGLUTIDE
     Dosage: 2.8 MILLIGRAM, (0.05MG/KG), QD
     Route: 065
     Dates: start: 20170412, end: 20181129
  53. TEDUGLUTIDE [Suspect]
     Active Substance: TEDUGLUTIDE
     Dosage: 2.8 MILLIGRAM, (0.05MG/KG), QD
     Route: 065
     Dates: start: 20170412, end: 20181129
  54. TEDUGLUTIDE [Suspect]
     Active Substance: TEDUGLUTIDE
     Dosage: 2.4 MILLIGRAM, (0.05MG/KG), QD
     Route: 065
     Dates: start: 20181130
  55. LOVENOX [Concomitant]
     Active Substance: ENOXAPARIN SODIUM
     Indication: THROMBOSIS
  56. COLECALCIFEROL [Concomitant]
     Active Substance: CHOLECALCIFEROL
     Indication: SHORT-BOWEL SYNDROME
     Dosage: 100000 INTERNATIONAL UNIT, MONTHLY
     Route: 048
     Dates: start: 20200214

REACTIONS (1)
  - Device related infection [Recovered/Resolved]

NARRATIVE: CASE EVENT DATE: 20170928
